FAERS Safety Report 5161116-8 (Version None)
Quarter: 2006Q4

REPORT INFORMATION
  Report Type: 
  Country: None (occurrence: None)
  Receive Date: 20061130
  Receipt Date: 20061127
  Transmission Date: 20070319
  Serious: Yes (Hospitalization)
  Sender: FDA-Public Use
  Company Number: FR-AVENTIS-200614152FR

PATIENT
  Age: 71 Year
  Sex: Female

DRUGS (5)
  1. KETEK [Suspect]
     Indication: BRONCHITIS
     Route: 048
     Dates: start: 20061025, end: 20061030
  2. PREVISCAN                          /00789001/ [Suspect]
     Route: 048
     Dates: end: 20061031
  3. MEDROL [Suspect]
     Indication: BRONCHITIS
     Route: 048
     Dates: start: 20061025, end: 20061030
  4. MUXOL                              /00064401/ [Concomitant]
     Indication: BRONCHITIS
     Route: 048
     Dates: start: 20061025, end: 20061030
  5. ANTITUSSIVES AND EXPECTORANTS, COMBINATIONS [Concomitant]
     Indication: BRONCHITIS
     Route: 048
     Dates: start: 20061025, end: 20061030

REACTIONS (5)
  - BACK PAIN [None]
  - DRUG INTERACTION [None]
  - INTERNATIONAL NORMALISED RATIO INCREASED [None]
  - MEDICATION ERROR [None]
  - MUSCLE HAEMORRHAGE [None]
